FAERS Safety Report 13478274 (Version 2)
Quarter: 2017Q2

REPORT INFORMATION
  Report Type: Spontaneous
  Country: JP (occurrence: JP)
  Receive Date: 20170425
  Receipt Date: 20170601
  Transmission Date: 20170830
  Serious: Yes (Hospitalization)
  Sender: FDA-Public Use
  Company Number: JP-AMGEN-JPNSP2017063146

PATIENT
  Age: 68 Year
  Sex: Male
  Weight: 50 kg

DRUGS (3)
  1. RANMARK [Suspect]
     Active Substance: DENOSUMAB
     Indication: METASTASES TO BONE
     Dosage: 120 MG, QMO
     Route: 058
     Dates: start: 20160122, end: 20160831
  2. ONBREZ [Concomitant]
     Active Substance: INDACATEROL
     Dosage: 150 MUG, QD
     Route: 055
     Dates: start: 20150702
  3. DENOTAS [Concomitant]
     Active Substance: CALCIUM CARBONATE\CHOLECALCIFEROL\MAGNESIUM CARBONATE
     Dosage: 1 DF, BID
     Route: 048
     Dates: start: 20160122, end: 20161214

REACTIONS (1)
  - Cellulitis [Recovering/Resolving]

NARRATIVE: CASE EVENT DATE: 20161125
